FAERS Safety Report 10416900 (Version 1)
Quarter: 2014Q3

REPORT INFORMATION
  Report Type: Spontaneous
  Country: US (occurrence: US)
  Receive Date: 20140828
  Receipt Date: 20140828
  Transmission Date: 20150326
  Serious: Yes (Other)
  Sender: FDA-Public Use
  Company Number: US-ELI_LILLY_AND_COMPANY-US201408006822

PATIENT
  Age: 59 Year
  Sex: Female

DRUGS (7)
  1. HUMALOG [Suspect]
     Active Substance: INSULIN LISPRO
     Indication: DIABETES MELLITUS
     Dosage: UNK UNK, PRN
     Route: 065
     Dates: start: 201305
  2. HUMALOG [Suspect]
     Active Substance: INSULIN LISPRO
     Dosage: UNK UNK, PRN
     Route: 065
     Dates: start: 201305
  3. HUMULIN 70/30 [Suspect]
     Active Substance: INSULIN HUMAN
     Dosage: 25 U, EACH EVENING
     Route: 065
     Dates: start: 201305
  4. HUMULIN 70/30 [Suspect]
     Active Substance: INSULIN HUMAN
     Indication: DIABETES MELLITUS
     Dosage: 45 U, EACH MORNING
     Route: 065
     Dates: start: 201305
  5. PROGRAFT [Concomitant]
     Active Substance: TACROLIMUS
  6. PREDNISONE. [Concomitant]
     Active Substance: PREDNISONE
  7. CELLCEPT [Concomitant]
     Active Substance: MYCOPHENOLATE MOFETIL\MYCOPHENOLATE MOFETIL HYDROCHLORIDE

REACTIONS (6)
  - Cataract [Unknown]
  - Injury associated with device [Unknown]
  - Blood glucose increased [Unknown]
  - Weight increased [Unknown]
  - Haemorrhage [Unknown]
  - Vision blurred [Unknown]

NARRATIVE: CASE EVENT DATE: 20140818
